FAERS Safety Report 20627790 (Version 1)
Quarter: 2022Q1

REPORT INFORMATION
  Report Type: Spontaneous
  Country: US (occurrence: US)
  Receive Date: 20220323
  Receipt Date: 20220323
  Transmission Date: 20220424
  Serious: Yes (Other)
  Sender: FDA-Public Use
  Company Number: US-GLAXOSMITHKLINE-US2022GSK048851

PATIENT
  Sex: Male

DRUGS (32)
  1. ZANTAC [Suspect]
     Active Substance: RANITIDINE HYDROCHLORIDE
     Indication: Gastrooesophageal reflux disease
     Dosage: 150 MG, WE
     Route: 065
     Dates: start: 200401, end: 202201
  2. ZANTAC [Suspect]
     Active Substance: RANITIDINE HYDROCHLORIDE
     Indication: Dyspepsia
     Dosage: 300 MG, WE
     Route: 065
     Dates: start: 200401, end: 202201
  3. ZANTAC [Suspect]
     Active Substance: RANITIDINE HYDROCHLORIDE
     Indication: Abdominal discomfort
     Dosage: 150 MG, 3 TIMES A WEEK
     Route: 065
     Dates: start: 200401, end: 202201
  4. ZANTAC [Suspect]
     Active Substance: RANITIDINE HYDROCHLORIDE
     Dosage: 300 MG, 3 TIMES A WEEK
     Route: 065
     Dates: start: 200401, end: 202201
  5. ZANTAC [Suspect]
     Active Substance: RANITIDINE HYDROCHLORIDE
     Indication: Gastrooesophageal reflux disease
     Dosage: 150 MG, WE
     Route: 065
     Dates: start: 200401, end: 202201
  6. ZANTAC [Suspect]
     Active Substance: RANITIDINE HYDROCHLORIDE
     Indication: Dyspepsia
     Dosage: 300 MG, WE
     Route: 065
     Dates: start: 200401, end: 202201
  7. ZANTAC [Suspect]
     Active Substance: RANITIDINE HYDROCHLORIDE
     Indication: Abdominal discomfort
     Dosage: 150 MG, 3 TIMES A WEEK
     Route: 065
     Dates: start: 200401, end: 202201
  8. ZANTAC [Suspect]
     Active Substance: RANITIDINE HYDROCHLORIDE
     Dosage: 300 MG, 3 TIMES A WEEK
     Route: 065
     Dates: start: 200401, end: 202201
  9. RANITIDINE HYDROCHLORIDE [Suspect]
     Active Substance: RANITIDINE HYDROCHLORIDE
     Indication: Gastrooesophageal reflux disease
     Dosage: 150 MG, WE
     Route: 065
     Dates: start: 200401, end: 202202
  10. RANITIDINE HYDROCHLORIDE [Suspect]
     Active Substance: RANITIDINE HYDROCHLORIDE
     Indication: Dyspepsia
     Dosage: 300 MG, WE
     Route: 065
     Dates: start: 200401, end: 202202
  11. RANITIDINE HYDROCHLORIDE [Suspect]
     Active Substance: RANITIDINE HYDROCHLORIDE
     Indication: Abdominal discomfort
     Dosage: 150 MG, 3 TIMES A WEEK
     Route: 065
     Dates: start: 200401, end: 202202
  12. RANITIDINE HYDROCHLORIDE [Suspect]
     Active Substance: RANITIDINE HYDROCHLORIDE
     Dosage: 300 MG, 3 TIMES A WEEK
     Route: 065
     Dates: start: 200401, end: 202202
  13. RANITIDINE HYDROCHLORIDE [Suspect]
     Active Substance: RANITIDINE HYDROCHLORIDE
     Indication: Gastrooesophageal reflux disease
     Dosage: 150 MG, WE
     Route: 065
     Dates: start: 200401, end: 202202
  14. RANITIDINE HYDROCHLORIDE [Suspect]
     Active Substance: RANITIDINE HYDROCHLORIDE
     Indication: Dyspepsia
     Dosage: 300 MG, WE
     Route: 065
     Dates: start: 200401, end: 202202
  15. RANITIDINE HYDROCHLORIDE [Suspect]
     Active Substance: RANITIDINE HYDROCHLORIDE
     Indication: Abdominal discomfort
     Dosage: 150 MG, 3 TIMES A WEEK
     Route: 065
     Dates: start: 200401, end: 202202
  16. RANITIDINE HYDROCHLORIDE [Suspect]
     Active Substance: RANITIDINE HYDROCHLORIDE
     Dosage: 300 MG, 3 TIMES A WEEK
     Route: 065
     Dates: start: 200401, end: 202202
  17. ZANTAC [Suspect]
     Active Substance: RANITIDINE HYDROCHLORIDE
     Indication: Gastrooesophageal reflux disease
     Dosage: 150 MG, WE
     Route: 065
     Dates: start: 200401, end: 202201
  18. ZANTAC [Suspect]
     Active Substance: RANITIDINE HYDROCHLORIDE
     Indication: Dyspepsia
     Dosage: 300 MG, WE
     Route: 065
     Dates: start: 200401, end: 202201
  19. ZANTAC [Suspect]
     Active Substance: RANITIDINE HYDROCHLORIDE
     Indication: Abdominal discomfort
     Dosage: 150 MG, 3 TIMES A WEEK
     Route: 065
     Dates: start: 200401, end: 202201
  20. ZANTAC [Suspect]
     Active Substance: RANITIDINE HYDROCHLORIDE
     Dosage: 300 MG, 3 TIMES A WEEK
     Route: 065
     Dates: start: 200401, end: 202201
  21. RANITIDINE [Suspect]
     Active Substance: RANITIDINE
     Indication: Gastrooesophageal reflux disease
     Dosage: 150 MG, WE
     Route: 065
     Dates: start: 200401, end: 202201
  22. RANITIDINE [Suspect]
     Active Substance: RANITIDINE
     Indication: Dyspepsia
     Dosage: 300 MG, WE
     Route: 065
     Dates: start: 200401, end: 202201
  23. RANITIDINE [Suspect]
     Active Substance: RANITIDINE
     Indication: Abdominal discomfort
     Dosage: 150 MG, 3 TIMES A WEEK
     Route: 065
     Dates: start: 200401, end: 202201
  24. RANITIDINE [Suspect]
     Active Substance: RANITIDINE
     Dosage: 300 MG, 3 TIMES A WEEK
     Route: 065
     Dates: start: 200401, end: 202201
  25. RANITIDINE [Suspect]
     Active Substance: RANITIDINE
     Dosage: 150 MG, WE
     Route: 065
     Dates: start: 200401, end: 202202
  26. RANITIDINE [Suspect]
     Active Substance: RANITIDINE
     Dosage: 300 MG, WE
     Route: 065
     Dates: start: 200401, end: 202202
  27. RANITIDINE [Suspect]
     Active Substance: RANITIDINE
     Dosage: 150 MG, 3 TIMES A WEEK
     Route: 065
     Dates: start: 200401, end: 202202
  28. RANITIDINE [Suspect]
     Active Substance: RANITIDINE
     Dosage: 300 MG, 3 TIMES A WEEK
     Route: 065
     Dates: start: 200401, end: 202202
  29. RANITIDINE [Suspect]
     Active Substance: RANITIDINE
     Indication: Gastrooesophageal reflux disease
     Dosage: 150 MG, WE
     Route: 065
     Dates: start: 200401, end: 202202
  30. RANITIDINE [Suspect]
     Active Substance: RANITIDINE
     Indication: Dyspepsia
     Dosage: 300 MG, WE
     Route: 065
     Dates: start: 200401, end: 202202
  31. RANITIDINE [Suspect]
     Active Substance: RANITIDINE
     Indication: Abdominal discomfort
     Dosage: 150 MG, 3 TIMES A WEEK
     Route: 065
     Dates: start: 200401, end: 202202
  32. RANITIDINE [Suspect]
     Active Substance: RANITIDINE
     Dosage: 300 MG, 3 TIMES A WEEK
     Route: 065
     Dates: start: 200401, end: 202202

REACTIONS (1)
  - Prostate cancer [Unknown]
